FAERS Safety Report 9210228 (Version 2)
Quarter: 2013Q2

REPORT INFORMATION
  Report Type: Report from Study
  Country: US (occurrence: US)
  Receive Date: 20130404
  Receipt Date: 20130408
  Transmission Date: 20140414
  Serious: Yes (Other)
  Sender: FDA-Public Use
  Company Number: US-ROCHE-1208279

PATIENT
  Age: 60 Year
  Sex: Female
  Weight: 81.27 kg

DRUGS (9)
  1. PEGASYS [Suspect]
     Indication: HEPATITIS C
     Route: 065
     Dates: start: 20121210, end: 20130211
  2. INCIVEK [Suspect]
     Indication: HEPATITIS C
     Route: 048
     Dates: start: 20121210, end: 20130212
  3. RIBASPHERE [Suspect]
     Indication: HEPATITIS C
     Dosage: DAILY DIVIDED DOSES
     Route: 048
     Dates: start: 20121210
  4. RIBASPHERE [Suspect]
     Route: 048
     Dates: end: 20130214
  5. PROCRIT [Suspect]
     Indication: ANAEMIA
     Dosage: 10000 UNITS
     Route: 058
     Dates: start: 20130115, end: 20130215
  6. EMERGEN-C [Concomitant]
     Route: 065
  7. VITAMIN B12 [Concomitant]
     Route: 065
  8. EPOGEN [Concomitant]
     Dosage: 10000 UNITS/ML SOLUTION
     Route: 065
  9. ROBITUSSIN DM [Concomitant]
     Dosage: AS NEEDED
     Route: 065

REACTIONS (8)
  - Rash erythematous [Recovered/Resolved]
  - Pyrexia [Unknown]
  - Hordeolum [Unknown]
  - Swelling [Unknown]
  - Drug ineffective [Unknown]
  - Rash vesicular [Not Recovered/Not Resolved]
  - Back pain [Unknown]
  - Anaemia [Unknown]
